FAERS Safety Report 7400413-X (Version None)
Quarter: 2011Q1

REPORT INFORMATION
  Report Type: 
  Country: None (occurrence: None)
  Receive Date: 20110330
  Receipt Date: 20110317
  Transmission Date: 20110831
  Serious: Yes (Disabling, Other)
  Sender: FDA-Public Use
  Company Number: 2010MA001178

PATIENT
  Sex: Female
  Weight: 91.173 kg

DRUGS (19)
  1. RABEPRAZOLE SODIUM [Concomitant]
  2. NEURONTIN [Concomitant]
  3. KLONOPIN [Concomitant]
  4. AMOXICILLIN [Concomitant]
  5. HUMALOG [Concomitant]
  6. NOVOLOG [Concomitant]
  7. CORTEF [Concomitant]
  8. ACCUPRIL [Concomitant]
  9. LEVALL [Concomitant]
  10. CYMBALTA [Concomitant]
  11. WELCHOL [Concomitant]
  12. METFORMIN [Concomitant]
  13. LIPITOR [Concomitant]
  14. LORTAB [Concomitant]
  15. METOCLOPRAMIDE [Suspect]
     Indication: GASTRIC DISORDER
     Dosage: 5 MG; PO
     Route: 048
     Dates: start: 20050301, end: 20080701
  16. POTASSIUM [Concomitant]
  17. SYNTHROID [Concomitant]
  18. ASTELIN [Concomitant]
  19. HYDROCORTISONE [Concomitant]

REACTIONS (45)
  - INCORRECT DRUG ADMINISTRATION DURATION [None]
  - PAIN [None]
  - EMOTIONAL DISTRESS [None]
  - DIABETES MELLITUS INADEQUATE CONTROL [None]
  - HYPOTHYROIDISM [None]
  - DYSPHAGIA [None]
  - TARDIVE DYSKINESIA [None]
  - INJURY [None]
  - STEREOTYPY [None]
  - VOCAL CORD DISORDER [None]
  - DYSPNOEA [None]
  - WEIGHT INCREASED [None]
  - EXTRAPYRAMIDAL DISORDER [None]
  - QUALITY OF LIFE DECREASED [None]
  - DYSARTHRIA [None]
  - HYPERREFLEXIA [None]
  - NERVOUS SYSTEM DISORDER [None]
  - ANXIETY [None]
  - ADRENAL INSUFFICIENCY [None]
  - FUNGAL INFECTION [None]
  - TEMPERATURE INTOLERANCE [None]
  - FATIGUE [None]
  - CONSTIPATION [None]
  - DEFORMITY [None]
  - DEPRESSION [None]
  - DYSKINESIA [None]
  - AKATHISIA [None]
  - NAUSEA [None]
  - VOMITING [None]
  - ARTHRALGIA [None]
  - ECONOMIC PROBLEM [None]
  - MENTAL DISORDER [None]
  - ORTHOSTATIC HYPOTENSION [None]
  - HYPOAESTHESIA [None]
  - MYALGIA [None]
  - HUNTINGTON'S DISEASE [None]
  - MOVEMENT DISORDER [None]
  - OESOPHAGEAL HYPOMOTILITY [None]
  - CHOREA [None]
  - TOOTH DISORDER [None]
  - PARAESTHESIA [None]
  - ERYTHEMA [None]
  - NEURODEGENERATIVE DISORDER [None]
  - POLYNEUROPATHY [None]
  - FAMILY STRESS [None]
